FAERS Safety Report 7089834-5 (Version None)
Quarter: 2010Q4

REPORT INFORMATION
  Report Type: 
  Country: None (occurrence: None)
  Receive Date: 20101108
  Receipt Date: 20101026
  Transmission Date: 20110411
  Serious: Yes (Other)
  Sender: FDA-Public Use
  Company Number: PHHY2010CA55783

PATIENT
  Sex: Female

DRUGS (10)
  1. ACLASTA [Suspect]
     Indication: OSTEOPOROSIS
     Dosage: UNK
     Dates: start: 20090825
  2. ACLASTA [Suspect]
     Dosage: 5 MG, UNK
     Dates: start: 20100916
  3. MAXALT [Concomitant]
  4. ELTROXIN [Concomitant]
  5. METOPROLOL [Concomitant]
  6. FIORINAL [Concomitant]
  7. NEXIUM [Concomitant]
  8. FLONASE [Concomitant]
  9. ANUSOL [Concomitant]
     Dosage: UNK
  10. PREMARIN [Concomitant]

REACTIONS (7)
  - BLOOD PRESSURE DECREASED [None]
  - CATARACT [None]
  - HEART RATE DECREASED [None]
  - RETINAL DETACHMENT [None]
  - SURGERY [None]
  - URINARY TRACT INFECTION [None]
  - VISUAL ACUITY REDUCED [None]
